FAERS Safety Report 10866869 (Version 6)
Quarter: 2017Q3

REPORT INFORMATION
  Report Type: Report from Study
  Country: CA (occurrence: CA)
  Receive Date: 20150225
  Receipt Date: 20170819
  Transmission Date: 20171127
  Serious: Yes (Hospitalization)
  Sender: FDA-Public Use
  Company Number: CA-ROCHE-1542410

PATIENT
  Age: 46 Year
  Sex: Female
  Weight: 60.38 kg

DRUGS (10)
  1. ATIVAN [Concomitant]
     Active Substance: LORAZEPAM
  2. CARDIZEM [Concomitant]
     Active Substance: DILTIAZEM HYDROCHLORIDE
  3. DEHYDROEPIANDROSTERONE [Concomitant]
     Active Substance: PRASTERONE
  4. PREDNISONE. [Concomitant]
     Active Substance: PREDNISONE
  5. RITUXAN [Suspect]
     Active Substance: RITUXIMAB
     Indication: DERMATOMYOSITIS
     Dosage: FREQUENCY:  DAY 1 AND DAY 15, LAST RITUXAN RECEIVEDC: 26/JAN/2014, 21/APR/2015.
     Route: 042
     Dates: start: 20140113
  6. IVIG [Concomitant]
     Active Substance: HUMAN IMMUNOGLOBULIN G
     Route: 065
  7. HYDROMORPH CONTIN [Concomitant]
     Active Substance: HYDROMORPHONE
  8. COTAZYM [Concomitant]
     Active Substance: PANCRELIPASE
  9. PARIET [Concomitant]
     Active Substance: RABEPRAZOLE SODIUM
  10. LYRICA [Concomitant]
     Active Substance: PREGABALIN

REACTIONS (9)
  - Pain [Unknown]
  - Blood test abnormal [Unknown]
  - Arthropathy [Recovering/Resolving]
  - Blood potassium decreased [Unknown]
  - Dermatomyositis [Unknown]
  - Osteonecrosis [Not Recovered/Not Resolved]
  - Weight fluctuation [Unknown]
  - Joint swelling [Unknown]
  - Cystitis [Not Recovered/Not Resolved]

NARRATIVE: CASE EVENT DATE: 2015
